FAERS Safety Report 6818450-2 (Version None)
Quarter: 2010Q3

REPORT INFORMATION
  Report Type: 
  Country: None (occurrence: None)
  Receive Date: 20100706
  Receipt Date: 20080602
  Transmission Date: 20110219
  Serious: No
  Sender: FDA-Public Use
  Company Number: US-PFIZER INC-2008046804

PATIENT
  Age: 11 Year
  Sex: Female
  Weight: 45.36 kg

DRUGS (2)
  1. ZITHROMAX [Suspect]
     Indication: BRONCHITIS
     Dosage: EVERY DAY
     Route: 048
     Dates: start: 20080602, end: 20080602
  2. ZITHROMAX [Suspect]
     Dosage: 250MG  EVERY DAY
     Route: 048
     Dates: start: 20080602

REACTIONS (2)
  - NAUSEA [None]
  - VOMITING [None]
